FAERS Safety Report 8200592-0 (Version None)
Quarter: 2012Q1

REPORT INFORMATION
  Report Type: 
  Country: None (occurrence: None)
  Receive Date: 20120312
  Receipt Date: 20120229
  Transmission Date: 20120608
  Serious: Yes (Hospitalization)
  Sender: FDA-Public Use
  Company Number: FR-BRISTOL-MYERS SQUIBB COMPANY-16429417

PATIENT
  Age: 68 Year
  Sex: Male

DRUGS (10)
  1. ATORVASTATIN [Concomitant]
  2. ASPEGIC 1000 [Concomitant]
  3. ASPEGIC 1000 [Suspect]
     Route: 048
     Dates: end: 20110610
  4. LEXOMIL [Concomitant]
  5. MODOPAR [Concomitant]
  6. FERROUS FUMARATE [Concomitant]
  7. COUMADIN [Suspect]
     Route: 048
     Dates: start: 20080301
  8. OMEPRAZOLE [Concomitant]
  9. ALFUZOSIN HCL [Concomitant]
  10. CORDARONE [Concomitant]

REACTIONS (5)
  - INTERNATIONAL NORMALISED RATIO INCREASED [None]
  - ANAEMIA [None]
  - HAEMATURIA [None]
  - ABDOMINAL PAIN UPPER [None]
  - EPISTAXIS [None]
